FAERS Safety Report 4536383-1 (Version None)
Quarter: 2004Q4

REPORT INFORMATION
  Report Type: 
  Country: None (occurrence: None)
  Receive Date: 20041223
  Receipt Date: 20040914
  Transmission Date: 20050328
  Serious: No
  Sender: FDA-Public Use
  Company Number: US-GLAXOSMITHKLINE-A0525613A

PATIENT
  Age: 88 Year
  Sex: Female

DRUGS (2)
  1. FLONASE [Suspect]
     Dosage: 2SPR PER DAY
     Route: 045
     Dates: start: 19940101
  2. PERCOCET [Concomitant]

REACTIONS (2)
  - NASAL DRYNESS [None]
  - RHINORRHOEA [None]
